FAERS Safety Report 6288452-6 (Version None)
Quarter: 2009Q3

REPORT INFORMATION
  Report Type: 
  Country: None (occurrence: None)
  Receive Date: 20090729
  Receipt Date: 20090723
  Transmission Date: 20100115
  Serious: Yes (Life-Threatening, Hospitalization)
  Sender: FDA-Public Use
  Company Number: B0534648A

PATIENT
  Sex: Female
  Weight: 69 kg

DRUGS (14)
  1. ZINNAT [Suspect]
     Indication: PYREXIA
     Route: 048
     Dates: start: 20080703, end: 20080712
  2. ERLOTINIB [Suspect]
     Indication: NON-SMALL CELL LUNG CANCER
     Dosage: 150MG PER DAY
     Route: 048
     Dates: start: 20080626, end: 20080715
  3. BLINDED TRIAL MEDICATION [Suspect]
     Indication: NON-SMALL CELL LUNG CANCER
     Dosage: 3.75MG PER DAY
     Route: 048
     Dates: start: 20080626, end: 20080715
  4. PRAZEPAM [Concomitant]
     Route: 048
     Dates: start: 20030101
  5. SPIRIVA [Concomitant]
     Route: 055
     Dates: start: 20070101
  6. SYMBICORT [Concomitant]
     Route: 055
     Dates: start: 20030101
  7. LANSOPRAZOLE [Concomitant]
     Route: 048
     Dates: start: 20060101
  8. PRIMPERAN [Concomitant]
     Route: 048
     Dates: start: 19800101
  9. BRUFEN [Concomitant]
     Route: 048
     Dates: start: 20080601
  10. LOPERAMIDE HYDROCHLORIDE [Concomitant]
     Route: 048
     Dates: start: 20080629
  11. DAFALGAN [Concomitant]
     Route: 048
     Dates: start: 20080629
  12. XYZAL [Concomitant]
     Route: 048
     Dates: start: 20080708
  13. ROZEX [Concomitant]
     Dates: start: 20080630
  14. OXYGEN [Concomitant]
     Route: 055
     Dates: start: 20080101

REACTIONS (11)
  - ALANINE AMINOTRANSFERASE INCREASED [None]
  - ASPARTATE AMINOTRANSFERASE INCREASED [None]
  - BLOOD BILIRUBIN INCREASED [None]
  - BLOOD LACTIC ACID INCREASED [None]
  - COUGH [None]
  - DYSPNOEA [None]
  - FEBRILE NEUTROPENIA [None]
  - HEPATIC FUNCTION ABNORMAL [None]
  - PLATELET COUNT DECREASED [None]
  - PYREXIA [None]
  - THROMBOCYTOPENIA [None]
